FAERS Safety Report 6909103-0 (Version None)
Quarter: 2010Q3

REPORT INFORMATION
  Report Type: 
  Country: None (occurrence: None)
  Receive Date: 20100805
  Receipt Date: 20100730
  Transmission Date: 20110219
  Serious: Yes (Hospitalization)
  Sender: FDA-Public Use
  Company Number: US-RB-011524-10

PATIENT
  Age: 22 Year
  Sex: Male

DRUGS (4)
  1. SUBOXONE [Suspect]
     Indication: DRUG DEPENDENCE
     Route: 060
     Dates: start: 20100601, end: 20100701
  2. SUBOXONE [Suspect]
     Route: 060
     Dates: start: 20100701
  3. ALLERGY PILL [Concomitant]
     Indication: MULTIPLE ALLERGIES
  4. ALPRAZOLAM [Concomitant]
     Indication: ANXIETY
     Dosage: DOSING DETAILS UNKNOWN
     Route: 065

REACTIONS (4)
  - DRUG WITHDRAWAL SYNDROME [None]
  - MUSCULAR WEAKNESS [None]
  - PNEUMONIA [None]
  - THROMBOSIS [None]
